FAERS Safety Report 7800467-2 (Version None)
Quarter: 2011Q4

REPORT INFORMATION
  Report Type: 
  Country: None (occurrence: None)
  Receive Date: 20111006
  Receipt Date: 20110929
  Transmission Date: 20120403
  Serious: Yes (Other)
  Sender: FDA-Public Use
  Company Number: CA-PFIZER INC-2011192148

PATIENT
  Age: 82 Year
  Sex: Female

DRUGS (15)
  1. NITROGLYCERIN SPRAY [Concomitant]
     Dosage: UNK
  2. XALATAN [Suspect]
     Dosage: ONE DROP IN BOTH EYES, ONCE DAILY
     Route: 047
     Dates: start: 20100101
  3. BISOPROLOL [Concomitant]
     Dosage: UNK
  4. LIPITOR [Concomitant]
     Dosage: UNK
  5. PLAVIX [Concomitant]
     Dosage: UNK
  6. DIOVAN [Concomitant]
     Dosage: UNK
  7. TYLENOL-500 [Concomitant]
     Indication: ARTHRITIS
     Dosage: UNK
  8. COMBIGAN [Concomitant]
     Dosage: UNK, BOTH EYES
     Route: 047
  9. GLICLAZIDE [Concomitant]
     Indication: BLOOD GLUCOSE INCREASED
     Dosage: UNK
  10. MELOXICAM [Concomitant]
     Indication: ARTHRITIS
     Dosage: UNK
  11. XALATAN [Suspect]
     Indication: GLAUCOMA
     Dosage: UNK
     Route: 047
     Dates: start: 20030101, end: 20090101
  12. TIAZAC [Concomitant]
     Dosage: UNK
  13. PANTOPRAZOLE [Concomitant]
     Dosage: UNK
  14. BIMATOPROST [Concomitant]
     Route: 047
  15. VITAMIN D [Concomitant]
     Dosage: UNK

REACTIONS (2)
  - MACULAR DEGENERATION [None]
  - OCULAR HYPERAEMIA [None]
